FAERS Safety Report 6739302-2 (Version None)
Quarter: 2010Q2

REPORT INFORMATION
  Report Type: 
  Country: None (occurrence: None)
  Receive Date: 20100517
  Receipt Date: 20100317
  Transmission Date: 20101027
  Serious: Yes (Other)
  Sender: FDA-Public Use
  Company Number: ALL1-2010-01586

PATIENT
  Age: 58 Year
  Sex: Female
  Weight: 72.6 kg

DRUGS (8)
  1. FOSRENOL [Suspect]
     Indication: HYPERPHOSPHATAEMIA
     Dosage: TAKES ONE AND AND ONE-HALF 1000 MG. TABLETS WITH MEALS, ORAL ; 1000 MG, 3X/DAY:TID WITH MEALS, ORAL
     Route: 048
     Dates: start: 20100101, end: 20100201
  2. FOSRENOL [Suspect]
     Indication: HYPERPHOSPHATAEMIA
     Dosage: TAKES ONE AND AND ONE-HALF 1000 MG. TABLETS WITH MEALS, ORAL ; 1000 MG, 3X/DAY:TID WITH MEALS, ORAL
     Route: 048
     Dates: start: 20100201
  3. LABETALOL HCL [Concomitant]
  4. ERGOCALCIFEROL [Concomitant]
  5. ZEMPLAR [Concomitant]
  6. LEVOTHYROXINE SODIUM [Concomitant]
  7. TYLENOL /00020001/ (PARACETAMOL) [Concomitant]
  8. TYLENOL PM /00435101/ (DIPHENHYDRAMINE HYDROCHLORIDE, PARACETAMOL) [Concomitant]

REACTIONS (4)
  - ABDOMINAL DISCOMFORT [None]
  - DEHYDRATION [None]
  - HYPOTENSION [None]
  - VOMITING [None]
